FAERS Safety Report 18949529 (Version 1)
Quarter: 2021Q1

REPORT INFORMATION
  Report Type: Spontaneous
  Country: US (occurrence: US)
  Receive Date: 20210227
  Receipt Date: 20210227
  Transmission Date: 20210420
  Serious: No
  Sender: FDA-Public Use
  Company Number: US-ROCHE-2594337

PATIENT

DRUGS (1)
  1. XOLAIR [Suspect]
     Active Substance: OMALIZUMAB
     Indication: PRODUCT USED FOR UNKNOWN INDICATION
     Route: 065

REACTIONS (10)
  - Immunosuppression [Unknown]
  - Influenza [Unknown]
  - Drug ineffective [Unknown]
  - Weight increased [Unknown]
  - Erythema [Unknown]
  - Therapeutic response unexpected [Unknown]
  - Product dispensing error [Unknown]
  - Unevaluable event [Unknown]
  - Adverse reaction [Unknown]
  - Pyrexia [Unknown]
